FAERS Safety Report 23791561 (Version 1)
Quarter: 2024Q2

REPORT INFORMATION
  Report Type: Report from Study
  Country: BR (occurrence: BR)
  Receive Date: 20240429
  Receipt Date: 20240429
  Transmission Date: 20240716
  Serious: Yes (Hospitalization, Other)
  Sender: FDA-Public Use
  Company Number: BR-CELLTRION INC.-2024BR009475

PATIENT

DRUGS (10)
  1. TRUXIMA [Suspect]
     Active Substance: RITUXIMAB-ABBS
     Indication: Microscopic polyangiitis
     Dosage: 2 AMPOULES AFTER 15 DAYS ANOTHER 2, THEN 6 MONTHS LATER
     Route: 042
     Dates: start: 20230207
  2. TRUXIMA [Suspect]
     Active Substance: RITUXIMAB-ABBS
     Indication: Dermatomyositis
     Dosage: 2 INFUSIONS OF TWO AMPOULES EVERY 6 MONTHS, 15 DAYS APART
     Route: 042
     Dates: start: 20240405
  3. MYCOPHENOLIC ACID [Concomitant]
     Active Substance: MYCOPHENOLIC ACID
     Indication: Dermatomyositis
     Dosage: 1 PILL EVERY 12 HOURS
     Route: 048
     Dates: start: 2018
  4. PREDNISONE [Concomitant]
     Active Substance: PREDNISONE
     Indication: Dermatomyositis
     Dosage: 1 PILL A DAY
     Route: 048
     Dates: start: 2013
  5. PREGABALIN [Concomitant]
     Active Substance: PREGABALIN
     Indication: Myalgia
     Dosage: 1 PILL A DAY; START DATE: 3 YEARS
     Route: 048
  6. DEXLANSOPRAZOLE [Concomitant]
     Active Substance: DEXLANSOPRAZOLE
     Indication: Product used for unknown indication
     Dosage: 1 PILL A DAY; START DATE: 1 YEAR
     Route: 048
  7. VITAMIN C [Concomitant]
     Active Substance: ASCORBIC ACID
     Indication: Immune enhancement therapy
     Dosage: 1 PILL A DAY
     Route: 048
     Dates: start: 2013
  8. RIVAROXABAN [Concomitant]
     Active Substance: RIVAROXABAN
     Indication: Thrombosis
     Dosage: 1 PILL EVERY 12 HOURS
     Route: 048
     Dates: start: 20240221
  9. DILTIAZEM [Concomitant]
     Active Substance: DILTIAZEM
     Indication: Tachycardia
     Dosage: 1 PILL EVERY 12 HOURS
     Route: 048
     Dates: start: 20240418
  10. ALBUTEROL [Concomitant]
     Active Substance: ALBUTEROL
     Indication: Product used for unknown indication
     Dosage: 1 PILL EVERY 12 HOURS
     Route: 048
     Dates: start: 20240329

REACTIONS (9)
  - Pulmonary embolism [Unknown]
  - Pulmonary haemorrhage [Unknown]
  - Condition aggravated [Unknown]
  - Chronic sinusitis [Unknown]
  - Infection [Unknown]
  - Pain in extremity [Unknown]
  - Intentional dose omission [Unknown]
  - Off label use [Unknown]
  - Intentional product use issue [Unknown]
